FAERS Safety Report 13607037 (Version 1)
Quarter: 2017Q2

REPORT INFORMATION
  Report Type: Spontaneous
  Country: US (occurrence: US)
  Receive Date: 20170602
  Receipt Date: 20170602
  Transmission Date: 20170830
  Serious: Yes (Other)
  Sender: FDA-Public Use
  Company Number: US-009507513-1705USA014269

PATIENT
  Age: 3 Year
  Sex: Female

DRUGS (1)
  1. PRIMAXIN IV [Suspect]
     Active Substance: CILASTATIN SODIUM\IMIPENEM
     Indication: PYELONEPHRITIS
     Dosage: UNK

REACTIONS (1)
  - Anaphylactic reaction [Unknown]
